FAERS Safety Report 18343490 (Version 1)
Quarter: 2020Q4

REPORT INFORMATION
  Report Type: Report from Study
  Country: NL (occurrence: NL)
  Receive Date: 20201005
  Receipt Date: 20201005
  Transmission Date: 20210113
  Serious: Yes (Other)
  Sender: FDA-Public Use
  Company Number: NL-RISING PHARMA HOLDINGS, INC.-2020RIS000243

PATIENT

DRUGS (1)
  1. AZATHIOPRINE. [Suspect]
     Active Substance: AZATHIOPRINE
     Indication: CROHN^S DISEASE
     Dosage: UNK
     Route: 065

REACTIONS (3)
  - Hepatic fibrosis [Unknown]
  - Product use in unapproved indication [Unknown]
  - Hepatic steatosis [Unknown]
